FAERS Safety Report 16196307 (Version 1)
Quarter: 2019Q2

REPORT INFORMATION
  Report Type: Spontaneous
  Country: CA (occurrence: CA)
  Receive Date: 20190415
  Receipt Date: 20190415
  Transmission Date: 20190711
  Serious: Yes (Other)
  Sender: FDA-Public Use
  Company Number: CA-APOTEX-2019AP011998

PATIENT
  Age: 31 Year
  Sex: Female

DRUGS (1)
  1. PAXIL [Suspect]
     Active Substance: PAROXETINE HYDROCHLORIDE
     Indication: PRODUCT USED FOR UNKNOWN INDICATION
     Dosage: UNK
     Route: 063

REACTIONS (6)
  - Foetal exposure during pregnancy [Unknown]
  - Arrhythmia [Unknown]
  - Bicuspid aortic valve [Unknown]
  - Speech disorder developmental [Unknown]
  - Bronchial hyperreactivity [Unknown]
  - Congenital aortic valve stenosis [Unknown]

NARRATIVE: CASE EVENT DATE: 20021016
